FAERS Safety Report 9742033 (Version 1)
Quarter: 2013Q4

REPORT INFORMATION
  Report Type: Spontaneous
  Country: US (occurrence: US)
  Receive Date: 20131210
  Receipt Date: 20131210
  Transmission Date: 20140711
  Serious: Yes (Other)
  Sender: FDA-Public Use
  Company Number: US-TEVA-449967USA

PATIENT
  Age: 58 Year
  Sex: Male

DRUGS (1)
  1. FENTANYL [Suspect]
     Route: 051

REACTIONS (5)
  - Respiratory depression [Recovered/Resolved]
  - Convulsion [Recovered/Resolved]
  - Somnolence [Recovered/Resolved]
  - Lethargy [Recovered/Resolved]
  - Medication error [Unknown]
